FAERS Safety Report 10746132 (Version 4)
Quarter: 2015Q3

REPORT INFORMATION
  Report Type: Report from Study
  Country: US (occurrence: US)
  Receive Date: 20150128
  Receipt Date: 20150918
  Transmission Date: 20151125
  Serious: Yes (Hospitalization)
  Sender: FDA-Public Use
  Company Number: US-ABBVIE-15P-163-1338164-00

PATIENT
  Age: 53 Year
  Sex: Female

DRUGS (2)
  1. HUMIRA [Suspect]
     Active Substance: ADALIMUMAB
     Indication: RHEUMATOID ARTHRITIS
     Route: 058
     Dates: start: 20140924, end: 20141230
  2. HUMIRA [Suspect]
     Active Substance: ADALIMUMAB
     Route: 058
     Dates: start: 20150827

REACTIONS (10)
  - Upper respiratory tract infection [Recovered/Resolved]
  - Myocardial necrosis marker increased [Unknown]
  - Myocardial infarction [Recovered/Resolved]
  - Cerebrovascular accident [Recovered/Resolved]
  - Cough [Unknown]
  - Diplopia [Not Recovered/Not Resolved]
  - Rheumatoid arthritis [Not Recovered/Not Resolved]
  - Aphonia [Unknown]
  - Hemiplegia [Unknown]
  - Laryngitis [Recovered/Resolved]

NARRATIVE: CASE EVENT DATE: 201412
